FAERS Safety Report 8517196-2 (Version None)
Quarter: 2012Q3

REPORT INFORMATION
  Report Type: 
  Country: None (occurrence: None)
  Receive Date: 20120706
  Receipt Date: 20120621
  Transmission Date: 20120928
  Serious: Yes (Other)
  Sender: FDA-Public Use
  Company Number: 1330668

PATIENT
  Age: 47 Year
  Sex: Male

DRUGS (3)
  1. LYRICA [Concomitant]
  2. ACETAMINOPHEN [Concomitant]
  3. PAMIDRONATE DISODIUM [Suspect]
     Indication: COMPLEX REGIONAL PAIN SYNDROME
     Dosage: 90 MG, 1 IN 1 SINGLE DOSE, 1 COURSE INTRAVENOUS DRIP
     Route: 041
     Dates: start: 20120406

REACTIONS (5)
  - INFLUENZA LIKE ILLNESS [None]
  - INJECTION SITE PAIN [None]
  - INFLAMMATION [None]
  - THROMBOPHLEBITIS SUPERFICIAL [None]
  - OEDEMA [None]
